FAERS Safety Report 5278509-0 (Version None)
Quarter: 2007Q1

REPORT INFORMATION
  Report Type: 
  Country: None (occurrence: None)
  Receive Date: 20070328
  Receipt Date: 20070322
  Transmission Date: 20070707
  Serious: Yes (Death)
  Sender: FDA-Public Use
  Company Number: PHEH2007US03133

PATIENT
  Age: 66 Year
  Sex: Female

DRUGS (1)
  1. EXJADE [Suspect]
     Indication: SERUM FERRITIN INCREASED
     Dosage: 20 MG/KG, QD
     Route: 048
     Dates: start: 20060101, end: 20060301

REACTIONS (1)
  - MYOCARDIAL INFARCTION [None]
